FAERS Safety Report 21152667 (Version 1)
Quarter: 2022Q3

REPORT INFORMATION
  Report Type: Spontaneous
  Country: US (occurrence: US)
  Receive Date: 20220730
  Receipt Date: 20220730
  Transmission Date: 20221027
  Serious: No
  Sender: FDA-Public Use
  Company Number: US-SA-SAC20220726001465

PATIENT
  Age: 60 Year
  Sex: Male
  Weight: 124 kg

DRUGS (2)
  1. DUPIXENT [Suspect]
     Active Substance: DUPILUMAB
     Indication: Nasal polyps
     Dosage: 300 MG QOW
     Route: 058
     Dates: start: 20200801
  2. DESCOVY [Concomitant]
     Active Substance: EMTRICITABINE\TENOFOVIR ALAFENAMIDE FUMARATE

REACTIONS (10)
  - COVID-19 [Unknown]
  - Pyrexia [Unknown]
  - Dyspnoea [Unknown]
  - Dizziness [Unknown]
  - Fatigue [Unknown]
  - Feeling abnormal [Unknown]
  - Hypoaesthesia [Unknown]
  - Blood pressure abnormal [Unknown]
  - Arthralgia [Unknown]
  - Product use in unapproved indication [Unknown]

NARRATIVE: CASE EVENT DATE: 20200801
